FAERS Safety Report 7506500-X (Version None)
Quarter: 2011Q2

REPORT INFORMATION
  Report Type: 
  Country: None (occurrence: None)
  Receive Date: 20110526
  Receipt Date: 20110509
  Transmission Date: 20111010
  Serious: Yes (Hospitalization)
  Sender: FDA-Public Use
  Company Number: US-BAYER-201014277NA

PATIENT
  Age: 21 Year
  Sex: Female
  Weight: 206 kg

DRUGS (8)
  1. AMOXICILLIN [Concomitant]
     Dates: start: 20060501
  2. NITROFURANTOIN [Concomitant]
     Dates: start: 20070101
  3. AUGMENTIN XR [Concomitant]
     Dates: start: 20040501
  4. ATENOLOL [Concomitant]
     Indication: WOLFF-PARKINSON-WHITE SYNDROME
     Dosage: 100 MG, QD
     Route: 048
     Dates: start: 20000101
  5. NAPROXEN [Concomitant]
     Dates: start: 20040101
  6. PENICILLIN VK [Concomitant]
     Dates: start: 20080201
  7. IBUPROFEN [Concomitant]
     Dates: start: 20080201
  8. YAZ [Suspect]
     Indication: ORAL CONTRACEPTION
     Route: 048
     Dates: start: 20070501, end: 20090222

REACTIONS (6)
  - OEDEMA PERIPHERAL [None]
  - DYSPNOEA [None]
  - HEADACHE [None]
  - DEEP VEIN THROMBOSIS [None]
  - PULMONARY EMBOLISM [None]
  - FATIGUE [None]
